FAERS Safety Report 16097468 (Version 2)
Quarter: 2019Q2

REPORT INFORMATION
  Report Type: Spontaneous
  Country: JP (occurrence: JP)
  Receive Date: 20190320
  Receipt Date: 20190626
  Transmission Date: 20190711
  Serious: Yes (Death, Life-Threatening, Other)
  Sender: FDA-Public Use
  Company Number: JP-ASTRAZENECA-2019SE43409

PATIENT
  Age: 27201 Day
  Sex: Male
  Weight: 51 kg

DRUGS (4)
  1. CALONAL [Concomitant]
     Active Substance: ACETAMINOPHEN
     Indication: CANCER PAIN
     Dosage: 600.0MG UNKNOWN
     Route: 048
     Dates: start: 20190220
  2. TAGRISSO [Suspect]
     Active Substance: OSIMERTINIB
     Indication: NON-SMALL CELL LUNG CANCER
     Route: 048
     Dates: start: 20190218, end: 20190228
  3. TRAMAL [Concomitant]
     Active Substance: TRAMADOL
     Indication: CANCER PAIN
     Dosage: 25.0MG UNKNOWN
     Route: 048
     Dates: start: 20190224
  4. TAGRISSO [Suspect]
     Active Substance: OSIMERTINIB
     Indication: NON-SMALL CELL LUNG CANCER
     Route: 048
     Dates: start: 20190215, end: 20190215

REACTIONS (14)
  - Condition aggravated [Unknown]
  - Pyrexia [Unknown]
  - Metastases to thorax [Unknown]
  - Urinary tract infection [Unknown]
  - Respiratory failure [Fatal]
  - Interstitial lung disease [Fatal]
  - Metastases to pleura [Unknown]
  - Acute respiratory distress syndrome [Unknown]
  - Malignant pleural effusion [Unknown]
  - Lymphangiosis carcinomatosa [Unknown]
  - Ventricular extrasystoles [Unknown]
  - Malignant neoplasm progression [Unknown]
  - Pseudomonas test positive [Unknown]
  - Asthma [Unknown]

NARRATIVE: CASE EVENT DATE: 20190215
